FAERS Safety Report 7963400-9 (Version None)
Quarter: 2011Q4

REPORT INFORMATION
  Report Type: 
  Country: None (occurrence: None)
  Receive Date: 20111208
  Receipt Date: 20111124
  Transmission Date: 20120403
  Serious: Yes (Other)
  Sender: FDA-Public Use
  Company Number: US-RANBAXY-2011RR-50793

PATIENT
  Sex: Female

DRUGS (8)
  1. CIPROFLOXACIN [Suspect]
     Indication: INFECTION
     Dosage: UNK
     Dates: start: 20080801
  2. LEVAQUIN [Suspect]
     Indication: SINUSITIS
     Dosage: 500 MG, QD
     Route: 048
     Dates: start: 20070307
  3. AVELOX [Suspect]
     Indication: INFECTION
     Dosage: 400 MG, UNK
     Route: 065
     Dates: start: 20080301
  4. LEVAQUIN [Suspect]
     Dosage: 500 MG, QD
     Route: 048
     Dates: start: 20080128
  5. LEVAQUIN [Suspect]
     Dosage: 500 MG, UNK
     Route: 048
     Dates: start: 20070525
  6. LEVAQUIN [Suspect]
     Dosage: 500 MG, QD
     Route: 048
     Dates: start: 20090126
  7. METHYLPREDNISOLONE [Suspect]
     Indication: INFLAMMATION
     Dosage: UNK
     Dates: start: 20070301
  8. AVELOX [Suspect]
     Dosage: 400 MG, UNK
     Route: 065
     Dates: start: 20070301

REACTIONS (4)
  - TENDON RUPTURE [None]
  - MUSCLE RUPTURE [None]
  - ROTATOR CUFF SYNDROME [None]
  - TENDONITIS [None]
